FAERS Safety Report 10272822 (Version 1)
Quarter: 2014Q2

REPORT INFORMATION
  Report Type: Spontaneous
  Country: US (occurrence: None)
  Receive Date: 20140627
  Receipt Date: 20140627
  Transmission Date: 20141212
  Serious: Yes (Hospitalization)
  Sender: FDA-Public Use
  Company Number: None

PATIENT
  Age: 84 Year
  Sex: Female
  Weight: 83 kg

DRUGS (16)
  1. DIGOXIN [Suspect]
     Indication: CARDIAC FAILURE CONGESTIVE
     Dosage: CHRONIC MED, 1 PILL, ORAL, QD
  2. CYMBALTA [Concomitant]
  3. OMEPRAZOLE [Concomitant]
  4. LASIX [Concomitant]
  5. VITAMIN WITH IRON [Concomitant]
  6. XARELTO [Concomitant]
  7. CARVEDILOL [Concomitant]
  8. CALCIUM WITH VITAMIN D [Concomitant]
  9. TYLENOL [Concomitant]
  10. MIRTAZAPINE [Concomitant]
  11. PERCOCET [Concomitant]
  12. TRIAMCINOLONE [Concomitant]
  13. LANTUS [Concomitant]
  14. SEPTRA [Concomitant]
  15. ZOFRAN [Concomitant]
  16. NOVOLOG [Concomitant]

REACTIONS (4)
  - Nausea [None]
  - Vomiting [None]
  - Decreased appetite [None]
  - Renal failure acute [None]
